FAERS Safety Report 19763368 (Version 1)
Quarter: 2021Q3

REPORT INFORMATION
  Report Type: Report from Study
  Country: CR (occurrence: CR)
  Receive Date: 20210830
  Receipt Date: 20210830
  Transmission Date: 20211014
  Serious: Yes (Other)
  Sender: FDA-Public Use
  Company Number: NVSC2021CR070980

PATIENT
  Age: 80 Year
  Sex: Female

DRUGS (3)
  1. VYMADA [Suspect]
     Active Substance: SACUBITRIL\VALSARTAN
     Indication: PRODUCT USED FOR UNKNOWN INDICATION
     Dosage: 100 MG
     Route: 065
  2. VYMADA [Suspect]
     Active Substance: SACUBITRIL\VALSARTAN
     Dosage: 0.5 DF (200 MG), BID (START DATE ? APPROXIMATELY 6 MONTHS AGO)
     Route: 065
  3. VYMADA [Suspect]
     Active Substance: SACUBITRIL\VALSARTAN
     Dosage: 0.5 DF (200 MG), BID (START DATE ? MORE THAN TWO YEARS AGO)
     Route: 065

REACTIONS (2)
  - Wrong technique in product usage process [Unknown]
  - Deafness [Unknown]
